FAERS Safety Report 23742435 (Version 1)
Quarter: 2024Q2

REPORT INFORMATION
  Report Type: Spontaneous
  Country: US (occurrence: US)
  Receive Date: 20240415
  Receipt Date: 20240415
  Transmission Date: 20240716
  Serious: No
  Sender: FDA-Public Use
  Company Number: US-CYCLE PHARMACEUTICALS LTD-2024-CYC-000043

PATIENT

DRUGS (4)
  1. TASCENSO ODT [Suspect]
     Active Substance: FINGOLIMOD LAURYL SULFATE
     Indication: Multiple sclerosis
     Dosage: 0.5 MG, QD
     Route: 048
     Dates: start: 20240403
  2. VITAMIN D NOS [Concomitant]
     Active Substance: VITAMIN D NOS
     Indication: Product used for unknown indication
     Route: 065
  3. ALBUTEROL [Concomitant]
     Active Substance: ALBUTEROL
     Indication: Product used for unknown indication
     Dosage: UNK, PRN
  4. FLOVENT [Concomitant]
     Active Substance: FLUTICASONE PROPIONATE
     Indication: Product used for unknown indication
     Dosage: UNK, PRN

REACTIONS (1)
  - Heart rate decreased [Recovered/Resolved]

NARRATIVE: CASE EVENT DATE: 20240403
